FAERS Safety Report 17289211 (Version 3)
Quarter: 2020Q1

REPORT INFORMATION
  Report Type: Spontaneous
  Country: PL (occurrence: PL)
  Receive Date: 20200120
  Receipt Date: 20200131
  Transmission Date: 20200409
  Serious: Yes (Other)
  Sender: FDA-Public Use
  Company Number: PL-PFIZER INC-2020017909

PATIENT
  Age: 45 Year
  Sex: Female

DRUGS (10)
  1. VENLAFAXINE HCL [Suspect]
     Active Substance: VENLAFAXINE HYDROCHLORIDE
     Dosage: 150 MG, DAILY
  2. ARIPIPRAZOLE. [Suspect]
     Active Substance: ARIPIPRAZOLE
     Dosage: 10 MG, DAILY
  3. LAMOTRIGINE. [Concomitant]
     Active Substance: LAMOTRIGINE
     Dosage: 200 MG, DAILY
  4. LITHIUM CARBONICUM [Concomitant]
     Active Substance: LITHIUM CARBONATE
     Dosage: 1000 MG, DAILY
  5. AMISULPRIDE [Concomitant]
     Active Substance: AMISULPRIDE
     Dosage: 400 MG, DAILY
  6. CLOZAPINE. [Concomitant]
     Active Substance: CLOZAPINE
     Dosage: 400 MG, DAILY
  7. LAMOTRIGINE. [Concomitant]
     Active Substance: LAMOTRIGINE
     Dosage: 125 MG, DAILY
  8. SERTRALINE HCL [Suspect]
     Active Substance: SERTRALINE HYDROCHLORIDE
     Dosage: UP TO 100 MG/DAY FOR FOUR WEEKS
  9. QUETIAPINE XR [Suspect]
     Active Substance: QUETIAPINE
     Dosage: 600 MG, DAILY
  10. ARIPIPRAZOLE. [Suspect]
     Active Substance: ARIPIPRAZOLE
     Dosage: 15 MG, DAILY

REACTIONS (9)
  - Dementia [Unknown]
  - Urinary incontinence [Unknown]
  - Tremor [Unknown]
  - Extrapyramidal disorder [Unknown]
  - Musculoskeletal stiffness [Unknown]
  - Fall [Unknown]
  - Hallucination, olfactory [Unknown]
  - Somatic symptom disorder of pregnancy [Unknown]
  - Drug ineffective [Unknown]
